FAERS Safety Report 6853674-X (Version None)
Quarter: 2010Q3

REPORT INFORMATION
  Report Type: 
  Country: None (occurrence: None)
  Receive Date: 20100717
  Receipt Date: 20080123
  Transmission Date: 20110219
  Serious: No
  Sender: FDA-Public Use
  Company Number: US-PFIZER INC-2007104720

PATIENT
  Sex: Male
  Weight: 80.3 kg

DRUGS (6)
  1. CHANTIX [Suspect]
     Indication: SMOKING CESSATION THERAPY
     Dosage: EVERY DAY
     Dates: start: 20071101
  2. CHANTIX [Interacting]
     Indication: TOBACCO ABUSE
  3. OXYCONTIN [Interacting]
     Indication: PAIN
     Dates: start: 20070701
  4. PERCOCET [Interacting]
     Indication: BREAKTHROUGH PAIN
     Dosage: 7.5/325MG TDD:15/650MG
     Dates: start: 20071001
  5. NADOLOL [Concomitant]
     Indication: HYPERTENSION
  6. XANAX [Concomitant]

REACTIONS (1)
  - DRUG INTERACTION [None]
